FAERS Safety Report 6032650-3 (Version None)
Quarter: 2009Q1

REPORT INFORMATION
  Report Type: 
  Country: None (occurrence: None)
  Receive Date: 20090109
  Receipt Date: 20081230
  Transmission Date: 20090719
  Serious: Yes (Death, Hospitalization, Disabling)
  Sender: FDA-Public Use
  Company Number: US-AMGEN-US304047

PATIENT
  Sex: Male

DRUGS (10)
  1. ROMIPLOSTIM [Suspect]
     Indication: MYELODYSPLASTIC SYNDROME
     Dates: start: 20080102, end: 20080828
  2. PREDNISONE [Concomitant]
     Route: 065
  3. MULTIPLE VITAMINS [Concomitant]
     Route: 065
  4. POTASSIUM CHLORIDE [Concomitant]
     Route: 048
  5. SIMVASTATIN [Concomitant]
     Route: 065
  6. LISINOPRIL [Concomitant]
     Route: 065
  7. METOPROLOL TARTRATE [Concomitant]
     Route: 065
  8. GLYBURIDE [Concomitant]
     Route: 065
  9. LASIX [Concomitant]
     Route: 065
  10. OXYGEN [Concomitant]
     Route: 055

REACTIONS (1)
  - PULMONARY FIBROSIS [None]
